FAERS Safety Report 18512801 (Version 1)
Quarter: 2020Q4

REPORT INFORMATION
  Report Type: Spontaneous
  Country: IT (occurrence: IT)
  Receive Date: 20201117
  Receipt Date: 20201117
  Transmission Date: 20210114
  Serious: Yes (Hospitalization)
  Sender: FDA-Public Use
  Company Number: IT-MYLANLABS-2020M1094361

PATIENT
  Age: 10 Year
  Sex: Female

DRUGS (4)
  1. AUGMENTIN [Suspect]
     Active Substance: AMOXICILLIN\CLAVULANATE POTASSIUM
     Indication: PHARYNGOTONSILLITIS
     Dosage: 2 GRAM, QD
     Route: 048
     Dates: start: 20200921, end: 20200922
  2. TACHIPIRINA [Concomitant]
     Active Substance: ACETAMINOPHEN
     Indication: PYREXIA
     Dosage: 1000 MILLIGRAM
     Route: 048
     Dates: start: 20200920, end: 20201020
  3. CEFIXORAL [Concomitant]
     Active Substance: CEFIXIME
     Indication: PHARYNGOTONSILLITIS
     Dosage: UNK
     Route: 048
     Dates: start: 20200920, end: 20200920
  4. BRUFEN [Suspect]
     Active Substance: IBUPROFEN
     Indication: PYREXIA
     Dosage: 1800 MILLIGRAM, QD
     Route: 048
     Dates: start: 20200921, end: 20200922

REACTIONS (2)
  - Rash [Unknown]
  - Off label use [Unknown]

NARRATIVE: CASE EVENT DATE: 20200922
